FAERS Safety Report 6270419-5 (Version None)
Quarter: 2009Q3

REPORT INFORMATION
  Report Type: 
  Country: None (occurrence: None)
  Receive Date: 20090716
  Receipt Date: 20090706
  Transmission Date: 20100115
  Serious: Yes (Other)
  Sender: FDA-Public Use
  Company Number: PHEH2009US07139

PATIENT
  Age: 67 Year
  Sex: Female

DRUGS (3)
  1. RECLAST [Suspect]
     Dosage: UNK
     Dates: start: 20080624
  2. CALCIUM [Concomitant]
  3. PREDNISONE TAB [Concomitant]
     Dosage: 40 MG, UNK

REACTIONS (3)
  - JAW DISORDER [None]
  - TOOTH DISORDER [None]
  - TOOTH FRACTURE [None]
